APPROVED DRUG PRODUCT: ACETAMINOPHEN, CAFFEINE AND DIHYDROCODEINE BITARTRATE
Active Ingredient: ACETAMINOPHEN; CAFFEINE; DIHYDROCODEINE BITARTRATE
Strength: 325MG;30MG;16MG
Dosage Form/Route: TABLET;ORAL
Application: A204209 | Product #001
Applicant: PHARMOBEDIENT CONSULTING LLC
Approved: Sep 30, 2016 | RLD: No | RS: No | Type: DISCN